FAERS Safety Report 8001516-1 (Version None)
Quarter: 2011Q4

REPORT INFORMATION
  Report Type: 
  Country: None (occurrence: None)
  Receive Date: 20111219
  Receipt Date: 20111208
  Transmission Date: 20120403
  Serious: Yes (Other)
  Sender: FDA-Public Use
  Company Number: 1000026121

PATIENT
  Age: 69 Year
  Sex: Male

DRUGS (1)
  1. LEXAPRO [Suspect]
     Indication: MIGRAINE
     Dosage: 10 MG(10 MG, 1 IN 1 D),ORAL
     Route: 048
     Dates: start: 20111206, end: 20111207

REACTIONS (3)
  - OFF LABEL USE [None]
  - VOMITING [None]
  - LOSS OF CONSCIOUSNESS [None]
